FAERS Safety Report 14706211 (Version 1)
Quarter: 2018Q2

REPORT INFORMATION
  Report Type: Spontaneous
  Country: US (occurrence: US)
  Receive Date: 20180402
  Receipt Date: 20180402
  Transmission Date: 20180711
  Serious: Yes (Other)
  Sender: FDA-Public Use
  Company Number: US-PFIZER INC-2018130518

PATIENT
  Sex: Female

DRUGS (1)
  1. XALKORI [Suspect]
     Active Substance: CRIZOTINIB
     Dosage: UNK

REACTIONS (6)
  - Hallucination [Unknown]
  - Nausea [Unknown]
  - Gait disturbance [Unknown]
  - Vomiting [Unknown]
  - Visual impairment [Unknown]
  - Seizure [Unknown]
